FAERS Safety Report 8185038-3 (Version None)
Quarter: 2012Q1

REPORT INFORMATION
  Report Type: 
  Country: None (occurrence: None)
  Receive Date: 20120301
  Receipt Date: 20120224
  Transmission Date: 20120608
  Serious: Yes (Death, Hospitalization)
  Sender: FDA-Public Use
  Company Number: SP05466

PATIENT
  Age: 73 Year
  Sex: Male
  Weight: 87 kg

DRUGS (10)
  1. SYNTHROID [Concomitant]
  2. MIRALAX [Concomitant]
  3. FLOMAX [Concomitant]
  4. METOLAZONE [Concomitant]
  5. DILAUDID [Concomitant]
  6. LASIX [Concomitant]
  7. POTASSIUM CHLORIDE [Concomitant]
  8. MS CONTIN [Concomitant]
  9. RELISTOR [Suspect]
     Indication: CONSTIPATION
     Dosage: (12 MG,ONCE),SUBCUTANEOUS
     Route: 058
     Dates: start: 20120105, end: 20120105
  10. AVODART [Concomitant]

REACTIONS (18)
  - METABOLIC ACIDOSIS [None]
  - RESPIRATORY FAILURE [None]
  - ATRIAL FIBRILLATION [None]
  - VENTRICULAR TACHYCARDIA [None]
  - CHEST X-RAY ABNORMAL [None]
  - GENERAL PHYSICAL HEALTH DETERIORATION [None]
  - SEPTIC SHOCK [None]
  - RENAL IMPAIRMENT [None]
  - BACTERAEMIA [None]
  - CARDIAC ARREST [None]
  - ESCHERICHIA TEST POSITIVE [None]
  - MENTAL STATUS CHANGES [None]
  - MULTI-ORGAN FAILURE [None]
  - HAEMATOCRIT DECREASED [None]
  - PLATELET COUNT DECREASED [None]
  - GASTROINTESTINAL SOUNDS ABNORMAL [None]
  - COMA [None]
  - ABDOMINAL DISTENSION [None]
